FAERS Safety Report 7386630-6 (Version None)
Quarter: 2011Q1

REPORT INFORMATION
  Report Type: 
  Country: None (occurrence: None)
  Receive Date: 20110331
  Receipt Date: 20110322
  Transmission Date: 20110831
  Serious: Yes (Hospitalization, Disabling)
  Sender: FDA-Public Use
  Company Number: AU-ASTRAZENECA-2011SE16486

PATIENT
  Age: 26 Year
  Sex: Male

DRUGS (1)
  1. SYMBICORT [Suspect]
     Indication: ASTHMA
     Dosage: 200/6, TWO INHALATION TWICE A DAY
     Route: 055
     Dates: start: 20110202, end: 20110209

REACTIONS (2)
  - CONVULSION [None]
  - MIGRAINE [None]
